FAERS Safety Report 8298782-4 (Version None)
Quarter: 2012Q1

REPORT INFORMATION
  Report Type: 
  Country: None (occurrence: None)
  Receive Date: 20120323
  Receipt Date: 20081104
  Transmission Date: 20120608
  Serious: Yes (Death)
  Sender: FDA-Public Use
  Company Number: PHEH2008US11605

PATIENT
  Age: 75 Year
  Sex: Male

DRUGS (1)
  1. TOBI [Suspect]
     Indication: PULMONARY FIBROSIS
     Dosage: 300 MG, QD, INHALATION
     Route: 055
     Dates: start: 20080904

REACTIONS (2)
  - CONCOMITANT DISEASE PROGRESSION [None]
  - CHRONIC OBSTRUCTIVE PULMONARY DISEASE [None]
